FAERS Safety Report 8949743 (Version 1)
Quarter: 2012Q4

REPORT INFORMATION
  Report Type: 
  Country: IT (occurrence: IT)
  Receive Date: 20121206
  Receipt Date: 20121206
  Transmission Date: 20130627
  Serious: Yes (Other)
  Sender: FDA-Public Use
  Company Number: IT-ROCHE-1164065

PATIENT

DRUGS (2)
  1. BEVACIZUMAB [Suspect]
     Indication: GLIOMA
     Route: 065
  2. FOTEMUSTINE [Suspect]
     Indication: GLIOMA
     Route: 065

REACTIONS (1)
  - Haematotoxicity [Unknown]
